FAERS Safety Report 5821919-0 (Version None)
Quarter: 2008Q3

REPORT INFORMATION
  Report Type: 
  Country: None (occurrence: None)
  Receive Date: 20080724
  Receipt Date: 20080712
  Transmission Date: 20090109
  Serious: Yes (Other)
  Sender: FDA-Public Use
  Company Number: US-PFIZER INC-2008058294

PATIENT
  Sex: Male
  Weight: 110 kg

DRUGS (5)
  1. CHANTIX [Suspect]
     Indication: SMOKING CESSATION THERAPY
     Dates: start: 20080601, end: 20080710
  2. MOBIC [Concomitant]
  3. HYDROCHLOROTHIAZIDE [Concomitant]
  4. SYNTHROID [Concomitant]
  5. VITAMIN TAB [Concomitant]

REACTIONS (3)
  - ABNORMAL DREAMS [None]
  - BLOOD TRIGLYCERIDES INCREASED [None]
  - HALLUCINATION [None]
